FAERS Safety Report 7461024-3 (Version None)
Quarter: 2011Q2

REPORT INFORMATION
  Report Type: 
  Country: None (occurrence: None)
  Receive Date: 20110505
  Receipt Date: 20110428
  Transmission Date: 20111010
  Serious: Yes (Life-Threatening, Hospitalization)
  Sender: FDA-Public Use
  Company Number: NL-GENZYME-CLOF-1001586

PATIENT
  Sex: Male
  Weight: 111 kg

DRUGS (4)
  1. CYTARABINE [Suspect]
     Indication: ACUTE LEUKAEMIA
     Dosage: 440 MG, UNK
     Route: 042
     Dates: start: 20110413, end: 20110419
  2. IDARUBICIN [Suspect]
     Indication: ACUTE LEUKAEMIA
     Dosage: 26 MG, UNK
     Route: 042
     Dates: start: 20110413, end: 20110415
  3. LASIX [Concomitant]
     Indication: OEDEMA
     Dosage: 80 MG, UNK
     Route: 042
     Dates: start: 20110405, end: 20110424
  4. EVOLTRA [Suspect]
     Indication: ACUTE LEUKAEMIA
     Dosage: 22 MG, UNK
     Route: 042
     Dates: start: 20110413, end: 20110417

REACTIONS (2)
  - DELIRIUM [None]
  - RESPIRATORY FAILURE [None]
